FAERS Safety Report 11072091 (Version 1)
Quarter: 2015Q2

REPORT INFORMATION
  Report Type: Spontaneous
  Country: US (occurrence: None)
  Receive Date: 20150427
  Receipt Date: 20150427
  Transmission Date: 20150821
  Serious: Yes (Life-Threatening, Hospitalization, Disabling, Other)
  Sender: FDA-Public Use
  Company Number: None

PATIENT
  Age: 18 Year
  Sex: Male
  Weight: 89.81 kg

DRUGS (9)
  1. IBUPROFEN. [Concomitant]
     Active Substance: IBUPROFEN
  2. PROAIR HFA [Concomitant]
     Active Substance: ALBUTEROL SULFATE
  3. NIGHT TIME RELIEF (ACETWMINOPHEN) [Concomitant]
  4. DISTILLED VINEGAR [Concomitant]
  5. SENCHA JADE RESERVE (TEA) [Concomitant]
  6. RISPERIDONE. [Concomitant]
     Active Substance: RISPERIDONE
  7. PRENATAL PILLS [Concomitant]
  8. QCARBOL6 [Concomitant]
  9. RISPERIDONE. [Suspect]
     Active Substance: RISPERIDONE
     Indication: PSYCHOTIC DISORDER
     Dosage: 2
     Route: 048

REACTIONS (5)
  - Somnolence [None]
  - Decreased appetite [None]
  - Weight decreased [None]
  - Sleep disorder [None]
  - Amnesia [None]

NARRATIVE: CASE EVENT DATE: 20140711
